FAERS Safety Report 9714558 (Version 1)
Quarter: 2013Q4

REPORT INFORMATION
  Report Type: Report from Study
  Country: US (occurrence: US)
  Receive Date: 20131126
  Receipt Date: 20131126
  Transmission Date: 20140711
  Serious: Yes (Other)
  Sender: FDA-Public Use
  Company Number: US-ABBVIE-13P-163-1171573-00

PATIENT
  Age: 53 Year
  Sex: Male
  Weight: 66 kg

DRUGS (3)
  1. HUMIRA [Suspect]
     Indication: CROHN^S DISEASE
     Route: 058
     Dates: start: 201108, end: 201310
  2. URSODIOL [Concomitant]
     Indication: CHOLANGITIS SCLEROSING
  3. ENTOCORT [Concomitant]
     Indication: CROHN^S DISEASE

REACTIONS (5)
  - Colon dysplasia [Not Recovered/Not Resolved]
  - Injection site erythema [Unknown]
  - Injection site pruritus [Unknown]
  - Injection site rash [Unknown]
  - Colon dysplasia [Not Recovered/Not Resolved]
